FAERS Safety Report 16686733 (Version 1)
Quarter: 2019Q3

REPORT INFORMATION
  Report Type: Spontaneous
  Country: US (occurrence: US)
  Receive Date: 20190624
  Receipt Date: 20190624
  Transmission Date: 20191004
  Serious: No
  Sender: FDA-Public Use
  Company Number: None

PATIENT
  Age: 69 Year
  Sex: Female

DRUGS (1)
  1. BOTOX [Suspect]
     Active Substance: ONABOTULINUMTOXINA
     Dates: start: 201812

REACTIONS (4)
  - Swelling of eyelid [None]
  - Eyelid ptosis [None]
  - Post procedural complication [None]
  - Visual impairment [None]

NARRATIVE: CASE EVENT DATE: 20190326
